FAERS Safety Report 8142545-7 (Version None)
Quarter: 2012Q1

REPORT INFORMATION
  Report Type: 
  Country: None (occurrence: None)
  Receive Date: 20120216
  Receipt Date: 20120202
  Transmission Date: 20120608
  Serious: Yes (Other)
  Sender: FDA-Public Use
  Company Number: GB-ARROW GEN-2012-00857

PATIENT
  Age: 73 Year

DRUGS (5)
  1. SEROQUEL [Suspect]
     Indication: BIPOLAR DISORDER
     Dosage: 50 MG, DAILY QUETIAPINE XL PROLONGED-RELEASE
     Route: 048
     Dates: start: 20110722, end: 20111115
  2. RISPERIDONE [Suspect]
     Indication: BIPOLAR DISORDER
     Dosage: 2 MG, BID STARTED MANY YEARS AGO
     Route: 048
     Dates: end: 20110722
  3. LYRICA [Concomitant]
     Indication: ANXIETY
     Dosage: 50 MG, BID
     Route: 048
     Dates: start: 20110629
  4. RAMIPRIL [Concomitant]
     Indication: BLOOD PRESSURE
     Dosage: 10 MG, DAILY STARTED MANY YEARS AGO
     Route: 048
  5. FLUOXETINE [Concomitant]
     Indication: BIPOLAR DISORDER
     Dosage: 40 MG, DAILY, STARTED MANY YEARS AGO
     Route: 048

REACTIONS (3)
  - TARDIVE DYSKINESIA [None]
  - TONGUE DISORDER [None]
  - DRUG WITHDRAWAL SYNDROME [None]
